FAERS Safety Report 25249174 (Version 1)
Quarter: 2025Q2

REPORT INFORMATION
  Report Type: Spontaneous
  Country: JP (occurrence: JP)
  Receive Date: 20250429
  Receipt Date: 20250429
  Transmission Date: 20250716
  Serious: Yes (Hospitalization)
  Sender: SANDOZ
  Company Number: JP-asahikaseip-2025-AER-02349

PATIENT
  Age: 83 Year
  Sex: Female

DRUGS (2)
  1. RECLAST [Suspect]
     Active Substance: ZOLEDRONIC ACID
     Indication: Product used for unknown indication
     Route: 041
     Dates: start: 20230406
  2. RECLAST [Suspect]
     Active Substance: ZOLEDRONIC ACID
     Route: 041
     Dates: start: 2025

REACTIONS (2)
  - Fracture [Unknown]
  - Bone density decreased [Unknown]

NARRATIVE: CASE EVENT DATE: 20250101
